FAERS Safety Report 4417686-8 (Version None)
Quarter: 2004Q2

REPORT INFORMATION
  Report Type: 
  Country: None (occurrence: None)
  Receive Date: 20040629
  Receipt Date: 20031204
  Transmission Date: 20050107
  Serious: Yes (Other)
  Sender: FDA-Public Use
  Company Number: USA031253903

PATIENT
  Age: 39 Year
  Sex: Male
  Weight: 95 kg

DRUGS (1)
  1. HUMALOG [Suspect]

REACTIONS (3)
  - BLOOD GLUCOSE DECREASED [None]
  - CONVULSION [None]
  - NASOPHARYNGITIS [None]
